FAERS Safety Report 15934978 (Version 1)
Quarter: 2019Q1

REPORT INFORMATION
  Report Type: Spontaneous
  Country: US (occurrence: US)
  Receive Date: 20190207
  Receipt Date: 20190207
  Transmission Date: 20190417
  Serious: Yes (Other)
  Sender: FDA-Public Use
  Company Number: US-SHIRE-US201903540

PATIENT

DRUGS (1)
  1. FIRAZYR [Suspect]
     Active Substance: ICATIBANT ACETATE
     Indication: PRODUCT USED FOR UNKNOWN INDICATION
     Dosage: 1 SYRINGE, AS REQ^D
     Route: 065
     Dates: start: 20120613

REACTIONS (2)
  - Cerebrovascular accident [Recovering/Resolving]
  - Cholelithiasis [Not Recovered/Not Resolved]
